FAERS Safety Report 7050157-1 (Version None)
Quarter: 2010Q4

REPORT INFORMATION
  Report Type: 
  Country: None (occurrence: None)
  Receive Date: 20101018
  Receipt Date: 20101007
  Transmission Date: 20110411
  Serious: Yes (Other)
  Sender: FDA-Public Use
  Company Number: CL-ASTRAZENECA-2010SE45126

PATIENT
  Sex: Male

DRUGS (3)
  1. CRESTOR [Suspect]
     Indication: DYSLIPIDAEMIA
     Route: 048
     Dates: start: 20100910, end: 20100921
  2. NEXIUM [Concomitant]
     Indication: GASTROOESOPHAGEAL REFLUX DISEASE
     Dosage: 40 MG 4 TIMES PER MONTH
     Route: 048
  3. PARACETAMOL [Concomitant]
     Indication: HEADACHE

REACTIONS (4)
  - DIZZINESS [None]
  - EYE HAEMORRHAGE [None]
  - HEADACHE [None]
  - URTICARIA [None]
